FAERS Safety Report 6960737-7 (Version None)
Quarter: 2010Q3

REPORT INFORMATION
  Report Type: 
  Country: None (occurrence: None)
  Receive Date: 20100901
  Receipt Date: 20100822
  Transmission Date: 20110219
  Serious: Yes (Other)
  Sender: FDA-Public Use
  Company Number: BR-PFIZER INC-2010105965

PATIENT
  Age: 34 Year
  Sex: Female

DRUGS (1)
  1. DOSTINEX [Suspect]
     Indication: PITUITARY TUMOUR BENIGN
     Dosage: UNK
     Route: 048

REACTIONS (3)
  - BLOOD PROLACTIN ABNORMAL [None]
  - DRUG INEFFECTIVE [None]
  - PITUITARY TUMOUR BENIGN [None]
